FAERS Safety Report 7710339-X (Version None)
Quarter: 2011Q3

REPORT INFORMATION
  Report Type: 
  Country: None (occurrence: None)
  Receive Date: 20110825
  Receipt Date: 20110818
  Transmission Date: 20111222
  Serious: Yes (Death)
  Sender: FDA-Public Use
  Company Number: US-PFIZER INC-2011191813

PATIENT
  Sex: Male

DRUGS (1)
  1. ELLENCE [Suspect]
     Indication: OESOPHAGEAL CARCINOMA
     Dosage: 50 MG, WEEKLY

REACTIONS (2)
  - DISEASE PROGRESSION [None]
  - OESOPHAGEAL CARCINOMA [None]
